FAERS Safety Report 16236197 (Version 3)
Quarter: 2019Q2

REPORT INFORMATION
  Report Type: Spontaneous
  Country: US (occurrence: US)
  Receive Date: 20190425
  Receipt Date: 20190503
  Transmission Date: 20190711
  Serious: No
  Sender: FDA-Public Use
  Company Number: US-JNJFOC-20190421646

PATIENT
  Sex: Male

DRUGS (6)
  1. IMBRUVICA [Suspect]
     Active Substance: IBRUTINIB
     Indication: CHRONIC LYMPHOCYTIC LEUKAEMIA
     Route: 065
  2. PREDNISONE. [Concomitant]
     Active Substance: PREDNISONE
  3. IMBRUVICA [Suspect]
     Active Substance: IBRUTINIB
     Indication: LYMPHOCYTIC LEUKAEMIA
     Route: 048
     Dates: start: 20190218
  4. PANTOPRAZOLE [Concomitant]
     Active Substance: PANTOPRAZOLE
  5. IMBRUVICA [Suspect]
     Active Substance: IBRUTINIB
     Indication: LYMPHOCYTIC LEUKAEMIA
     Route: 065
  6. IMBRUVICA [Suspect]
     Active Substance: IBRUTINIB
     Indication: CHRONIC LYMPHOCYTIC LEUKAEMIA
     Route: 048
     Dates: start: 20190218

REACTIONS (5)
  - Cough [Unknown]
  - Decreased appetite [Unknown]
  - Nausea [Unknown]
  - Productive cough [Unknown]
  - Weight decreased [Unknown]

NARRATIVE: CASE EVENT DATE: 2019
